FAERS Safety Report 10155836 (Version 1)
Quarter: 2014Q2

REPORT INFORMATION
  Report Type: Spontaneous
  Country: TR (occurrence: TR)
  Receive Date: 20140506
  Receipt Date: 20140506
  Transmission Date: 20141212
  Serious: Yes (Other)
  Sender: FDA-Public Use
  Company Number: PHHY2014TR052160

PATIENT
  Age: 55 Year
  Sex: Female

DRUGS (2)
  1. METHOTREXATE [Suspect]
     Indication: RHEUMATOID ARTHRITIS
     Dosage: 15 MG, PER WEEK
  2. PREDNISOLONE [Suspect]
     Indication: RHEUMATOID ARTHRITIS
     Dosage: 10 MG, PER DAY

REACTIONS (11)
  - Encephalopathy [Unknown]
  - Hepatitis cholestatic [Unknown]
  - Acute hepatic failure [Unknown]
  - Hepatic fibrosis [Unknown]
  - Hepatitis B [Unknown]
  - Jaundice [Unknown]
  - Asthenia [Unknown]
  - Blood bilirubin increased [Unknown]
  - Transaminases increased [Unknown]
  - Ascites [Unknown]
  - Cholestasis [Unknown]
